FAERS Safety Report 4376124-4 (Version None)
Quarter: 2004Q2

REPORT INFORMATION
  Report Type: 
  Country: None (occurrence: None)
  Receive Date: 20040611
  Receipt Date: 20040603
  Transmission Date: 20050107
  Serious: Yes (Hospitalization)
  Sender: FDA-Public Use
  Company Number: FR-ROCHE-369652

PATIENT
  Age: 26 Year
  Sex: Female

DRUGS (2)
  1. NICARDIPINE HCL [Suspect]
     Indication: TOCOLYSIS
     Dosage: DOSE REPORTED AS 15ML PER HOUR.
     Route: 041
     Dates: start: 20040409, end: 20040410
  2. GLUCOSE 5% [Concomitant]
     Route: 041
     Dates: start: 20040409, end: 20040410

REACTIONS (4)
  - COMPLICATIONS OF MATERNAL EXPOSURE TO THERAPEUTIC DRUGS [None]
  - COUGH [None]
  - MALAISE [None]
  - PALPITATIONS [None]
